FAERS Safety Report 5985762-4 (Version None)
Quarter: 2008Q4

REPORT INFORMATION
  Report Type: 
  Country: None (occurrence: None)
  Receive Date: 20081208
  Receipt Date: 20080331
  Transmission Date: 20090506
  Serious: No
  Sender: FDA-Public Use
  Company Number: US-AMGEN-KDL272155

PATIENT
  Sex: Male

DRUGS (2)
  1. ENBREL [Suspect]
     Indication: RHEUMATOID ARTHRITIS
     Route: 058
     Dates: start: 20070601, end: 20071001
  2. METHOTREXATE [Concomitant]
     Dates: start: 20070601

REACTIONS (3)
  - CHILLS [None]
  - DRUG INEFFECTIVE [None]
  - PYREXIA [None]
